FAERS Safety Report 13162114 (Version 1)
Quarter: 2017Q1

REPORT INFORMATION
  Report Type: Spontaneous
  Country: US (occurrence: US)
  Receive Date: 20170130
  Receipt Date: 20170130
  Transmission Date: 20170428
  Serious: No
  Sender: FDA-Public Use
  Company Number: US-PFIZER INC-2017037173

PATIENT
  Age: 74 Year
  Sex: Female
  Weight: 108.39 kg

DRUGS (1)
  1. IBRANCE [Suspect]
     Active Substance: PALBOCICLIB
     Indication: BREAST CANCER METASTATIC
     Dosage: DAY 1-21, Q28 DAYS
     Route: 048

REACTIONS (5)
  - Asthenia [Unknown]
  - Myalgia [Unknown]
  - Bone pain [Unknown]
  - Fatigue [Unknown]
  - Neoplasm progression [Unknown]
